FAERS Safety Report 19850596 (Version 5)
Quarter: 2021Q4

REPORT INFORMATION
  Report Type: Spontaneous
  Country: US (occurrence: US)
  Receive Date: 20210917
  Receipt Date: 20211005
  Transmission Date: 20220303
  Serious: Yes (Hospitalization, Other)
  Sender: FDA-Public Use
  Company Number: US-CELGENE-USA-20210901392

PATIENT
  Sex: Male

DRUGS (1)
  1. REVLIMID [Suspect]
     Active Substance: LENALIDOMIDE
     Indication: Plasma cell myeloma
     Dosage: 2.5 MILLIGRAM
     Route: 048
     Dates: start: 20210722

REACTIONS (5)
  - Cardiac disorder [Recovered/Resolved]
  - Full blood count decreased [Unknown]
  - Peripheral swelling [Unknown]
  - Tooth abscess [Unknown]
  - Neutropenia [Unknown]

NARRATIVE: CASE EVENT DATE: 20210101
